FAERS Safety Report 7436907-0 (Version None)
Quarter: 2011Q1

REPORT INFORMATION
  Report Type: 
  Country: None (occurrence: None)
  Receive Date: 20110302
  Receipt Date: 20101129
  Transmission Date: 20110831
  Serious: No
  Sender: FDA-Public Use
  Company Number: 022878

PATIENT
  Sex: Female
  Weight: 57 kg

DRUGS (2)
  1. CIMZIA [Suspect]
     Indication: CROHN'S DISEASE
     Dosage: TWO SHOTS SUBCUTANEOUS
     Route: 058
     Dates: start: 20101001
  2. HYDROCODONE BITARTRATE [Concomitant]

REACTIONS (2)
  - BACK PAIN [None]
  - MENORRHAGIA [None]
